FAERS Safety Report 4452234-8 (Version None)
Quarter: 2004Q3

REPORT INFORMATION
  Report Type: 
  Country: None (occurrence: None)
  Receive Date: 20040915
  Receipt Date: 20040830
  Transmission Date: 20050211
  Serious: Yes (Hospitalization, Other)
  Sender: FDA-Public Use
  Company Number: JP-2004-029251

PATIENT
  Age: 30 Year
  Sex: Female

DRUGS (3)
  1. BETAFERON [Suspect]
     Indication: MULTIPLE SCLEROSIS
     Dosage: SEE IMAGE
     Route: 058
     Dates: start: 20040430, end: 20040430
  2. BETAFERON [Suspect]
     Indication: MULTIPLE SCLEROSIS
     Dosage: SEE IMAGE
     Route: 058
     Dates: start: 20040502, end: 20040705
  3. GASTER (FAMOTIDINE) [Suspect]
     Indication: GASTRITIS
     Dosage: 20 MG, 1 X/DAY, ORAL
     Route: 048
     Dates: start: 20040623, end: 20040706

REACTIONS (8)
  - ALANINE AMINOTRANSFERASE INCREASED [None]
  - ASPARTATE AMINOTRANSFERASE INCREASED [None]
  - BLOOD ALKALINE PHOSPHATASE INCREASED [None]
  - BLOOD BILIRUBIN INCREASED [None]
  - GAMMA-GLUTAMYLTRANSFERASE INCREASED [None]
  - GASTRITIS [None]
  - HEPATIC FUNCTION ABNORMAL [None]
  - JAUNDICE [None]
